FAERS Safety Report 21644967 (Version 3)
Quarter: 2023Q4

REPORT INFORMATION
  Report Type: Report from Study
  Country: LB (occurrence: SL)
  Receive Date: 20221125
  Receipt Date: 20231012
  Transmission Date: 20240109
  Serious: Yes (Hospitalization)
  Sender: FDA-Public Use
  Company Number: LB-ABBVIE-4214357

PATIENT
  Age: 30 Year
  Sex: Male
  Weight: 94 kg

DRUGS (5)
  1. SKYRIZI [Suspect]
     Active Substance: RISANKIZUMAB-RZAA
     Indication: Psoriasis
     Dosage: TWO INJECTIONS / SECOND DOSE?FORM STRENGTH 75 MILLIGRAM
     Route: 058
     Dates: start: 20220309, end: 20220309
  2. SKYRIZI [Suspect]
     Active Substance: RISANKIZUMAB-RZAA
     Dosage: TWO INJECTIONS / FOURTH DOSE?FORM STRENGTH 75 MILLIGRAM
     Route: 058
     Dates: start: 20220916, end: 20220916
  3. SKYRIZI [Suspect]
     Active Substance: RISANKIZUMAB-RZAA
     Dosage: TWO INJECTIONS / FIRST DOSE?FORM STRENGTH 75 MILLIGRAM
     Route: 058
     Dates: start: 20220211, end: 20220211
  4. SKYRIZI [Suspect]
     Active Substance: RISANKIZUMAB-RZAA
     Dosage: TWO INJECTIONS / THIRD DOSE?FORM STRENGTH 75 MILLIGRAM
     Route: 058
     Dates: start: 20220601, end: 20220601
  5. SKYRIZI [Suspect]
     Active Substance: RISANKIZUMAB-RZAA
     Dosage: TWO INJECTIONS / FIFTH DOSE?FORM STRENGTH 75 MILLIGRAM
     Route: 058
     Dates: start: 20221223, end: 20221223

REACTIONS (3)
  - Myocardial infarction [Recovered/Resolved]
  - Gastrointestinal inflammation [Not Recovered/Not Resolved]
  - Food poisoning [Recovered/Resolved]

NARRATIVE: CASE EVENT DATE: 20221101
